FAERS Safety Report 11830459 (Version 3)
Quarter: 2015Q4

REPORT INFORMATION
  Report Type: Spontaneous
  Country: US (occurrence: US)
  Receive Date: 20151214
  Receipt Date: 20151214
  Transmission Date: 20160305
  Serious: No
  Sender: FDA-Public Use
  Company Number: US-JNJFOC-20151124675

PATIENT
  Age: 62 Year
  Sex: Male
  Weight: 102.06 kg

DRUGS (1)
  1. SIMPONI [Suspect]
     Active Substance: GOLIMUMAB
     Indication: ARTHRITIS
     Route: 058
     Dates: start: 2014

REACTIONS (4)
  - Device malfunction [Unknown]
  - Accidental exposure to product [Unknown]
  - Drug dose omission [Unknown]
  - Incorrect product storage [Unknown]

NARRATIVE: CASE EVENT DATE: 20151125
